FAERS Safety Report 10201732 (Version 1)
Quarter: 2014Q2

REPORT INFORMATION
  Report Type: Spontaneous
  Country: US (occurrence: US)
  Receive Date: 20140528
  Receipt Date: 20140528
  Transmission Date: 20141212
  Serious: No
  Sender: FDA-Public Use
  Company Number: US-BRISTOL-MYERS SQUIBB COMPANY-19015452

PATIENT
  Age: 91 Year
  Sex: Female

DRUGS (24)
  1. GLUCOPHAGE [Suspect]
  2. NORVASC [Concomitant]
     Dosage: TABS
     Route: 048
  3. LIPITOR [Concomitant]
     Indication: BLOOD CHOLESTEROL
     Route: 048
  4. PULMICORT [Concomitant]
     Dosage: 1DF: 2PUFFS?180 MCG
     Route: 055
  5. BUMEX [Concomitant]
     Dosage: TABS
  6. CALCIUM + VITAMIN D [Concomitant]
  7. PLAVIX [Concomitant]
     Dosage: TABS
  8. LOMOTIL [Concomitant]
     Indication: DIARRHOEA
     Dosage: 1DF: 1TAB?2.5-0.025MG
     Route: 048
  9. LUNESTA [Concomitant]
     Dosage: TABS
     Route: 048
  10. FESOTERODINE [Concomitant]
     Route: 048
  11. GLUCOSE [Concomitant]
  12. NOVOLOG [Concomitant]
     Dosage: 1DF: 48UNITS
     Route: 058
  13. KLOR-CON [Concomitant]
     Route: 048
  14. PREVACID [Concomitant]
     Indication: HYPERCHLORHYDRIA
  15. COZAAR [Concomitant]
     Route: 048
  16. LOPRESSOR [Concomitant]
     Route: 048
  17. SINGULAIR [Concomitant]
     Dosage: AT BEDTIME
     Route: 048
  18. SYNTHROID [Concomitant]
  19. ULTRAM [Concomitant]
     Dosage: TABS
  20. VITAMIN B12 [Concomitant]
     Route: 048
  21. VITAMIN D [Concomitant]
     Dosage: 1DF: 2000UNITS
  22. ALDACTONE [Concomitant]
     Indication: DIARRHOEA
  23. FOSAMAX [Concomitant]
     Indication: VOMITING
  24. NYSTATIN [Concomitant]
     Route: 061

REACTIONS (1)
  - Drug hypersensitivity [Unknown]
